FAERS Safety Report 19163724 (Version 2)
Quarter: 2021Q3

REPORT INFORMATION
  Report Type: Spontaneous
  Country: CN (occurrence: CN)
  Receive Date: 20210421
  Receipt Date: 20210813
  Transmission Date: 20211014
  Serious: Yes (Other)
  Sender: FDA-Public Use
  Company Number: CN-ROCHE-2809595

PATIENT
  Age: 45 Year
  Sex: Female

DRUGS (12)
  1. DOXORUBICIN [Concomitant]
     Active Substance: DOXORUBICIN
     Indication: FOLLICULAR LYMPHOMA
     Dates: start: 20130916
  2. VINCRISTINE [Concomitant]
     Active Substance: VINCRISTINE
     Dates: start: 20131007
  3. CYCLOPHOSPHAMIDE. [Concomitant]
     Active Substance: CYCLOPHOSPHAMIDE
     Dates: start: 20131007
  4. GAZYVA [Suspect]
     Active Substance: OBINUTUZUMAB
     Indication: FOLLICULAR LYMPHOMA
     Route: 042
     Dates: start: 20130916
  5. GAZYVA [Suspect]
     Active Substance: OBINUTUZUMAB
     Route: 042
     Dates: start: 20140207
  6. PREDNISONE. [Concomitant]
     Active Substance: PREDNISONE
     Dates: start: 20131007
  7. GAZYVA [Suspect]
     Active Substance: OBINUTUZUMAB
     Route: 042
     Dates: start: 20140515
  8. PREDNISONE. [Concomitant]
     Active Substance: PREDNISONE
     Indication: FOLLICULAR LYMPHOMA
     Dates: start: 20130916
  9. GAZYVA [Suspect]
     Active Substance: OBINUTUZUMAB
     Route: 042
     Dates: start: 20131007
  10. VINCRISTINE [Concomitant]
     Active Substance: VINCRISTINE
     Indication: FOLLICULAR LYMPHOMA
     Dates: start: 20130916
  11. DOXORUBICIN [Concomitant]
     Active Substance: DOXORUBICIN
     Dates: start: 20131007
  12. CYCLOPHOSPHAMIDE. [Concomitant]
     Active Substance: CYCLOPHOSPHAMIDE
     Indication: FOLLICULAR LYMPHOMA
     Dates: start: 20130916

REACTIONS (6)
  - White blood cell count decreased [Recovering/Resolving]
  - Pyrexia [Recovering/Resolving]
  - Interstitial lung disease [Recovering/Resolving]
  - Pneumonitis [Recovering/Resolving]
  - Myelosuppression [Recovering/Resolving]
  - Neutrophil count decreased [Recovering/Resolving]

NARRATIVE: CASE EVENT DATE: 20130924
